FAERS Safety Report 7535301-1 (Version None)
Quarter: 2011Q2

REPORT INFORMATION
  Report Type: 
  Country: None (occurrence: None)
  Receive Date: 20110609
  Receipt Date: 20080109
  Transmission Date: 20111010
  Serious: Yes (Other)
  Sender: FDA-Public Use
  Company Number: PHFR2007GB00471

PATIENT
  Sex: Male

DRUGS (4)
  1. MOVIPREP [Concomitant]
     Dosage: 1 DF, BID
     Route: 048
  2. TRAZODONE HCL [Concomitant]
     Dosage: 200 MG, QD
     Route: 048
  3. CLOZAPINE [Suspect]
     Indication: SCHIZOPHRENIA
     Dosage: 450 MG, DAILY
     Route: 048
     Dates: start: 20050603
  4. HYOSCINE [Concomitant]
     Dosage: 300 UG, TID
     Route: 048

REACTIONS (3)
  - LUNG CONSOLIDATION [None]
  - CARDIOMEGALY [None]
  - LOBAR PNEUMONIA [None]
